FAERS Safety Report 4421460-6 (Version None)
Quarter: 2004Q3

REPORT INFORMATION
  Report Type: 
  Country: None (occurrence: None)
  Receive Date: 20040712
  Receipt Date: 20040326
  Transmission Date: 20050211
  Serious: No
  Sender: FDA-Public Use
  Company Number: 2004-03-1978

PATIENT
  Sex: Female

DRUGS (1)
  1. CLARINEX [Suspect]
     Dosage: 1 DOSE ORAL
     Route: 048
     Dates: start: 20040324, end: 20040324

REACTIONS (2)
  - HEADACHE [None]
  - LYMPHADENOPATHY [None]
